FAERS Safety Report 5988985-3 (Version None)
Quarter: 2008Q4

REPORT INFORMATION
  Report Type: 
  Country: None (occurrence: None)
  Receive Date: 20081210
  Receipt Date: 20081203
  Transmission Date: 20090506
  Serious: Yes (Hospitalization, Other)
  Sender: FDA-Public Use
  Company Number: A0755419A

PATIENT
  Age: 75 Year
  Sex: Male
  Weight: 124 kg

DRUGS (14)
  1. ADVAIR HFA [Suspect]
     Indication: CHRONIC OBSTRUCTIVE PULMONARY DISEASE
     Dosage: 1PUFF TWICE PER DAY
     Route: 055
     Dates: start: 20041001, end: 20071020
  2. SPIRIVA [Concomitant]
     Indication: CHRONIC OBSTRUCTIVE PULMONARY DISEASE
     Dosage: 18MG PER DAY
     Route: 055
     Dates: start: 20050501, end: 20071020
  3. POTASSIUM CHLORIDE [Concomitant]
     Dosage: 10MG PER DAY
     Route: 048
     Dates: start: 20060301
  4. NORTRIPTYLINE HCL [Concomitant]
     Dosage: 10MG PER DAY
     Route: 048
     Dates: start: 20061025, end: 20071020
  5. FLOMAX [Concomitant]
     Dosage: .4MG PER DAY
     Route: 048
     Dates: start: 20020101, end: 20071020
  6. SINGULAIR [Concomitant]
     Indication: CHRONIC OBSTRUCTIVE PULMONARY DISEASE
     Dosage: 10MG PER DAY
     Route: 048
     Dates: start: 20050501, end: 20071020
  7. ASPIRIN [Concomitant]
     Indication: PROPHYLAXIS
     Dosage: 81MG PER DAY
     Route: 048
     Dates: start: 19921101
  8. CALCIUM WITH VITAMIN D [Concomitant]
     Indication: SURGERY
     Route: 048
     Dates: start: 20060501
  9. SENNA [Concomitant]
     Indication: CONSTIPATION
     Dosage: 8.6MG PER DAY
     Route: 048
     Dates: start: 20050501, end: 20071020
  10. FUROSEMIDE [Concomitant]
     Indication: FLUID RETENTION
     Dosage: 40MG PER DAY
     Route: 048
     Dates: start: 20060921
  11. TOPROL-XL [Concomitant]
     Indication: HYPERTENSION
     Dosage: 100MG PER DAY
     Route: 048
     Dates: start: 20070407
  12. PRAVASTATIN [Concomitant]
     Dosage: 40MG PER DAY
     Route: 048
     Dates: start: 20070407, end: 20071020
  13. DILTIAZEM HCL [Concomitant]
     Indication: HYPERTENSION
     Dosage: 240MG PER DAY
     Route: 048
     Dates: start: 20070407, end: 20071020
  14. ATENOLOL [Concomitant]
     Indication: HYPERTENSION
     Dosage: 50MG PER DAY
     Route: 048
     Dates: start: 20060925, end: 20070407

REACTIONS (5)
  - BLADDER CANCER [None]
  - CELLULITIS [None]
  - COMA [None]
  - URINARY BLADDER RUPTURE [None]
  - WEIGHT DECREASED [None]
